FAERS Safety Report 19075640 (Version 1)
Quarter: 2021Q1

REPORT INFORMATION
  Report Type: Report from Study
  Country: JP (occurrence: JP)
  Receive Date: 20210331
  Receipt Date: 20210331
  Transmission Date: 20210420
  Serious: Yes (Hospitalization)
  Sender: FDA-Public Use
  Company Number: JP-ROCHE-2797343

PATIENT
  Age: 51 Year
  Sex: Female
  Weight: 57 kg

DRUGS (8)
  1. E KEPPRA [Concomitant]
     Active Substance: LEVETIRACETAM
  2. VIMPAT [Concomitant]
     Active Substance: LACOSAMIDE
  3. SAMTIREL [Concomitant]
     Active Substance: ATOVAQUONE
     Route: 048
     Dates: start: 20190310
  4. AVASTIN [Suspect]
     Active Substance: BEVACIZUMAB
     Indication: GLIOBLASTOMA
     Route: 041
     Dates: start: 20201211, end: 20210219
  5. MAGNESIUM OXIDE. [Concomitant]
     Active Substance: MAGNESIUM OXIDE
     Dates: start: 20190110
  6. NEXIUM [Concomitant]
     Active Substance: ESOMEPRAZOLE MAGNESIUM
  7. NEXIUM [Concomitant]
     Active Substance: ESOMEPRAZOLE MAGNESIUM
  8. GLYCYRRHIZA [Concomitant]
     Active Substance: LICORICE
     Route: 048
     Dates: start: 20190404

REACTIONS (1)
  - Cholecystitis acute [Not Recovered/Not Resolved]

NARRATIVE: CASE EVENT DATE: 20210301
